FAERS Safety Report 7027505-1 (Version None)
Quarter: 2010Q4

REPORT INFORMATION
  Report Type: 
  Country: None (occurrence: None)
  Receive Date: 20101004
  Receipt Date: 20100730
  Transmission Date: 20110411
  Serious: Yes (Death, Hospitalization, Other)
  Sender: FDA-Public Use
  Company Number: PHHY2010JP51279

PATIENT
  Sex: Female

DRUGS (8)
  1. DIOVAN [Suspect]
     Indication: HYPERTENSION
     Dosage: 40 MG, QD
     Route: 048
     Dates: start: 20080806, end: 20100411
  2. ADALAT [Concomitant]
     Indication: HYPERTENSION
     Dosage: 20 MG
     Route: 048
     Dates: end: 20080805
  3. DEPAKENE [Concomitant]
     Dosage: 400 MG
     Route: 048
     Dates: end: 20100411
  4. GRAMALIL [Concomitant]
     Dosage: 100 MG
     Route: 048
     Dates: start: 20070401, end: 20100411
  5. ALDACTONE [Concomitant]
     Dosage: 12.5 MG
     Route: 048
     Dates: start: 20070330, end: 20100411
  6. DIART [Concomitant]
     Dosage: 60 MG
     Route: 048
     Dates: start: 20070330, end: 20100411
  7. MEVALOTIN [Concomitant]
     Dosage: 10 MG
     Route: 048
     Dates: end: 20100411
  8. MAGLAX [Concomitant]
     Dosage: 1500 MG
     Route: 048
     Dates: start: 20030719, end: 20100411

REACTIONS (4)
  - ALTERED STATE OF CONSCIOUSNESS [None]
  - BLOOD PRESSURE DIASTOLIC DECREASED [None]
  - INFECTION [None]
  - PYREXIA [None]
